FAERS Safety Report 4961936-6 (Version None)
Quarter: 2006Q2

REPORT INFORMATION
  Report Type: 
  Country: None (occurrence: None)
  Receive Date: 20060404
  Receipt Date: 20050328
  Transmission Date: 20061013
  Serious: Yes (Hospitalization, Disabling, Other)
  Sender: FDA-Public Use
  Company Number: US-MERCK-0503USA05064

PATIENT
  Age: 62 Year
  Sex: Male
  Weight: 86 kg

DRUGS (21)
  1. VIOXX [Suspect]
     Indication: ARTHRALGIA
     Route: 048
     Dates: start: 20020601, end: 20040701
  2. VIOXX [Suspect]
     Route: 048
     Dates: start: 20020601, end: 20040701
  3. VIOXX [Suspect]
     Route: 048
     Dates: start: 20020601, end: 20040701
  4. VIOXX [Suspect]
     Route: 048
     Dates: start: 20020601, end: 20040701
  5. NITROGLYCERIN [Concomitant]
     Route: 065
  6. LASIX [Concomitant]
     Route: 065
  7. GLUCOTROL [Concomitant]
     Indication: DIABETES MELLITUS
     Route: 065
  8. DIOVAN [Concomitant]
     Route: 065
  9. FLOMAX [Concomitant]
     Route: 065
  10. COUMADIN [Concomitant]
     Route: 065
  11. DOXYCYCLINE [Concomitant]
     Route: 065
  12. VALIUM [Concomitant]
     Route: 065
  13. COREG [Concomitant]
     Route: 065
  14. TRICOR [Concomitant]
     Route: 065
  15. VICODIN [Concomitant]
     Route: 065
  16. PRAVACHOL [Concomitant]
     Route: 065
  17. Q-10 [Concomitant]
     Route: 065
  18. PROSCAR [Concomitant]
     Route: 048
  19. DIGOXIN [Concomitant]
     Route: 065
  20. IBUPROFEN [Concomitant]
     Route: 065
  21. TYLENOL (CAPLET) [Concomitant]
     Route: 065

REACTIONS (24)
  - ACUTE MYOCARDIAL INFARCTION [None]
  - ANXIETY [None]
  - ATELECTASIS [None]
  - CARDIAC DISORDER [None]
  - CARDIAC FAILURE [None]
  - CLOSED HEAD INJURY [None]
  - CORONARY ARTERY DISEASE [None]
  - DYSPHONIA [None]
  - EMOTIONAL DISORDER [None]
  - FALL [None]
  - HYPERCHOLESTEROLAEMIA [None]
  - INTRACARDIAC THROMBUS [None]
  - ISCHAEMIC CARDIOMYOPATHY [None]
  - MITRAL VALVE DISEASE [None]
  - MITRAL VALVE INCOMPETENCE [None]
  - MUSCLE SPASMS [None]
  - PLEURAL EFFUSION [None]
  - RENAL FAILURE CHRONIC [None]
  - ROTATOR CUFF SYNDROME [None]
  - SKIN LACERATION [None]
  - SPLENOMEGALY [None]
  - VENTRICULAR ARRHYTHMIA [None]
  - VENTRICULAR DYSFUNCTION [None]
  - VENTRICULAR TACHYCARDIA [None]
